FAERS Safety Report 19905899 (Version 8)
Quarter: 2022Q2

REPORT INFORMATION
  Report Type: Report from Study
  Country: BR (occurrence: BR)
  Receive Date: 20210930
  Receipt Date: 20220407
  Transmission Date: 20220721
  Serious: Yes (Other)
  Sender: FDA-Public Use
  Company Number: NVSC2021BR215451

PATIENT
  Age: 75 Year
  Sex: Female
  Weight: 65 kg

DRUGS (7)
  1. BROLUCIZUMAB [Suspect]
     Active Substance: BROLUCIZUMAB
     Indication: Age-related macular degeneration
     Dosage: UNK UNK, Q3MO
     Route: 031
     Dates: start: 20210831
  2. BROLUCIZUMAB [Suspect]
     Active Substance: BROLUCIZUMAB
     Dosage: UNK
     Route: 065
     Dates: start: 20211005
  3. SYSTANE (HYPROMELLOSE 2910 (4000 MPA.S)) [Concomitant]
     Active Substance: HYPROMELLOSE 2910 (4000 MPA.S)
     Indication: Eye lubrication therapy
     Dosage: 1 DRP, TID (RIGHT EYE)
     Route: 065
     Dates: start: 2014
  4. NEOVITE LUTEIN [Concomitant]
     Indication: Product used for unknown indication
     Dosage: 1 DF, QD (EVERY DAY FOR 3 MONTHS, FOLLOWED BY A ONE MONTH PAUSE)
     Route: 048
     Dates: start: 2014
  5. PURAN [Concomitant]
     Active Substance: LEVOTHYROXINE SODIUM
     Indication: Thyroid disorder
     Dosage: 1 DF, QD (BEFORE VSIQQ)
     Route: 048
  6. LUMIGAN [Concomitant]
     Active Substance: BIMATOPROST
     Indication: Product used for unknown indication
     Dosage: UNK
     Route: 065
  7. DORZOLAMIDE HYDROCHLORIDE\TIMOLOL MALEATE [Concomitant]
     Active Substance: DORZOLAMIDE HYDROCHLORIDE\TIMOLOL MALEATE
     Indication: Product used for unknown indication
     Dosage: UNK
     Route: 065

REACTIONS (32)
  - Eye haemorrhage [Unknown]
  - Skin discolouration [Recovered/Resolved]
  - Eye haemorrhage [Recovered/Resolved]
  - Eye injury [Unknown]
  - Eye haemorrhage [Recovered/Resolved with Sequelae]
  - Swelling face [Not Recovered/Not Resolved]
  - Skin hypertrophy [Not Recovered/Not Resolved]
  - Eye pruritus [Not Recovered/Not Resolved]
  - Eye inflammation [Not Recovered/Not Resolved]
  - Eye pain [Recovered/Resolved]
  - Eyelid irritation [Recovered/Resolved]
  - Madarosis [Recovered/Resolved]
  - Skin discolouration [Recovering/Resolving]
  - Eyelid exfoliation [Recovered/Resolved with Sequelae]
  - Ocular discomfort [Recovered/Resolved]
  - Visual field defect [Recovered/Resolved]
  - Visual impairment [Recovering/Resolving]
  - Ocular hyperaemia [Recovered/Resolved]
  - Ocular hyperaemia [Recovered/Resolved]
  - Dark circles under eyes [Recovering/Resolving]
  - Eye swelling [Recovered/Resolved]
  - Condition aggravated [Recovering/Resolving]
  - Visual field defect [Not Recovered/Not Resolved]
  - Eye pruritus [Recovered/Resolved]
  - Eye pruritus [Recovered/Resolved]
  - Eye pain [Recovered/Resolved]
  - Ocular discomfort [Unknown]
  - Eye irritation [Recovered/Resolved]
  - Eye pain [Recovered/Resolved]
  - Vision blurred [Unknown]
  - Eye pain [Recovering/Resolving]
  - Administration site pain [Recovered/Resolved]

NARRATIVE: CASE EVENT DATE: 20210831
